FAERS Safety Report 6574727-X (Version None)
Quarter: 2010Q1

REPORT INFORMATION
  Report Type: 
  Country: None (occurrence: None)
  Receive Date: 20100209
  Receipt Date: 20100127
  Transmission Date: 20100710
  Serious: Yes (Other)
  Sender: FDA-Public Use
  Company Number: PHHY2010GB03655

PATIENT
  Age: 8 Year
  Sex: Male

DRUGS (1)
  1. DESFERAL [Suspect]
     Dosage: UNK
     Dates: end: 20090301

REACTIONS (2)
  - EYE DISORDER [None]
  - RETINAL DYSTROPHY [None]
